FAERS Safety Report 5897525-9 (Version None)
Quarter: 2008Q3

REPORT INFORMATION
  Report Type: 
  Country: None (occurrence: None)
  Receive Date: 20080916
  Receipt Date: 20071227
  Transmission Date: 20090109
  Serious: Yes (Other)
  Sender: FDA-Public Use
  Company Number: S07-USA-05530-01

PATIENT
  Age: 85 Year
  Sex: Female

DRUGS (5)
  1. CELEXA [Suspect]
     Indication: ANXIETY
     Dosage: (ONCE A DAY),ORAL
     Route: 048
     Dates: start: 20071001, end: 20071022
  2. HYDROCHLOROTHIAZIDE [Concomitant]
  3. ASPIRIN [Concomitant]
  4. ADVIL (IBUPROFEN) (IBUPROFEN) [Concomitant]
  5. EXELON (RIVASTIGMINE TARTRATE) (TRANSDERMAL) (RIVASTIGMINE TARTRATE) [Concomitant]

REACTIONS (1)
  - CONVULSION [None]
